FAERS Safety Report 7022419-5 (Version None)
Quarter: 2010Q3

REPORT INFORMATION
  Report Type: 
  Country: None (occurrence: None)
  Receive Date: 20100930
  Receipt Date: 20100917
  Transmission Date: 20110219
  Serious: Yes (Other)
  Sender: FDA-Public Use
  Company Number: CA-JNJFOC-20100503855

PATIENT
  Age: 8 Month
  Sex: Female
  Weight: 8.62 kg

DRUGS (2)
  1. CONCENTRATED MOTRIN INFANTS DROPS [Suspect]
     Indication: PYREXIA
     Route: 048
  2. CONCENTRATED MOTRIN INFANTS DROPS [Suspect]
     Indication: NASOPHARYNGITIS
     Route: 048

REACTIONS (2)
  - MUSCLE TWITCHING [None]
  - PRODUCT QUALITY ISSUE [None]
